FAERS Safety Report 7824860-7 (Version None)
Quarter: 2011Q4

REPORT INFORMATION
  Report Type: 
  Country: None (occurrence: None)
  Receive Date: 20111019
  Receipt Date: 20110215
  Transmission Date: 20120403
  Serious: No
  Sender: FDA-Public Use
  Company Number: US-BRISTOL-MYERS SQUIBB COMPANY-15552193

PATIENT
  Age: 67 Year
  Sex: Male

DRUGS (5)
  1. JANUVIA [Concomitant]
  2. AVALIDE [Suspect]
     Dosage: 90 DAY SUPPLY
     Dates: start: 20110101
  3. GLIPIZIDE [Concomitant]
  4. LANTUS [Concomitant]
     Dosage: AT NIGHT
  5. METFORMIN HCL [Concomitant]

REACTIONS (1)
  - BLOOD PRESSURE INADEQUATELY CONTROLLED [None]
